FAERS Safety Report 8818825 (Version 9)
Quarter: 2014Q2

REPORT INFORMATION
  Report Type: Report from Study
  Country: LB (occurrence: LB)
  Receive Date: 20121001
  Receipt Date: 20140630
  Transmission Date: 20141212
  Serious: Yes (Hospitalization, Other)
  Sender: FDA-Public Use
  Company Number: PHHY2012LB084581

PATIENT
  Age: 58 Year
  Sex: Male

DRUGS (7)
  1. TASIGNA [Suspect]
     Indication: CHRONIC MYELOID LEUKAEMIA
     Dosage: 800 MG, DAILY
     Route: 048
     Dates: start: 20120501
  2. TENORMIN [Concomitant]
     Dosage: 1 DF, Q12H
     Route: 048
     Dates: start: 2005
  3. GLUCOPHAGE [Concomitant]
     Dosage: 1 DF, Q12H
     Route: 048
     Dates: start: 2008
  4. VASCOR [Concomitant]
     Dosage: 1 DF, DAILY
     Route: 048
     Dates: start: 2005
  5. AMARYL [Concomitant]
     Dosage: 1 DF, DAILY
     Route: 048
     Dates: start: 20120926
  6. ASPIRIN [Concomitant]
     Dosage: 1 DF, DAILY
     Route: 048
     Dates: start: 2005
  7. CARDULAR [Concomitant]
     Dosage: 1 DF, DAILY
     Route: 048

REACTIONS (10)
  - Lung infection [Recovering/Resolving]
  - Acute pulmonary oedema [Not Recovered/Not Resolved]
  - Leukocytosis [Recovering/Resolving]
  - Cataract [Not Recovered/Not Resolved]
  - Hyperglycaemia [Not Recovered/Not Resolved]
  - Visual acuity reduced [Recovering/Resolving]
  - Vision blurred [Not Recovered/Not Resolved]
  - Myalgia [Recovering/Resolving]
  - Influenza [Recovering/Resolving]
  - Pyrexia [Recovering/Resolving]
